FAERS Safety Report 10542926 (Version 1)
Quarter: 2014Q4

REPORT INFORMATION
  Report Type: Spontaneous
  Country: US (occurrence: None)
  Receive Date: 20141023
  Receipt Date: 20141023
  Transmission Date: 20150529
  Serious: Yes (Disabling, Other)
  Sender: FDA-Public Use
  Company Number: 54973 AE 1572

PATIENT
  Age: 1 Year
  Sex: Male

DRUGS (2)
  1. BABY TEETHING [Suspect]
     Active Substance: ARABICA COFFEE BEAN\ATROPA BELLADONNA\CALCIUM PHOSPHATE\CHAMOMILE
     Indication: TEETHING
     Dosage: AS DIRECTED ON THE LABEL
  2. BABY TEETHING [Suspect]
     Active Substance: ARABICA COFFEE BEAN\ATROPA BELLADONNA\CALCIUM PHOSPHATE\CHAMOMILE
     Indication: ANALGESIC THERAPY
     Dosage: AS DIRECTED ON THE LABEL

REACTIONS (5)
  - Speech disorder [None]
  - Disturbance in attention [None]
  - Memory impairment [None]
  - Illiteracy [None]
  - Psychomotor skills impaired [None]

NARRATIVE: CASE EVENT DATE: 200501
